FAERS Safety Report 21753521 (Version 1)
Quarter: 2022Q4

REPORT INFORMATION
  Report Type: Spontaneous
  Country: US (occurrence: None)
  Receive Date: 20221219
  Receipt Date: 20221219
  Transmission Date: 20230112
  Serious: Yes (Hospitalization)
  Sender: FDA-Public Use
  Company Number: None

PATIENT
  Age: 66 Year
  Sex: Female
  Weight: 64.2 kg

DRUGS (17)
  1. PAXLOVID [Suspect]
     Active Substance: NIRMATRELVIR\RITONAVIR
     Indication: COVID-19
     Dosage: OTHER FREQUENCY : TAKE AS DIRECTED;?
     Dates: start: 20220907, end: 20220912
  2. AZITHROMYCIN [Concomitant]
     Active Substance: AZITHROMYCIN
     Dates: start: 20220907, end: 20220912
  3. BENZONATATE [Concomitant]
     Active Substance: BENZONATATE
     Dates: start: 20220907, end: 20220912
  4. METOPROLOL [Concomitant]
     Active Substance: METOPROLOL
  5. NIFEDIPINE [Concomitant]
     Active Substance: NIFEDIPINE
  6. PREDNISONE [Concomitant]
     Active Substance: PREDNISONE
  7. SIMVASTATIN [Concomitant]
     Active Substance: SIMVASTATIN
  8. MYFORTIC [Concomitant]
     Active Substance: MYCOPHENOLATE SODIUM
  9. TACROLIMUS [Concomitant]
     Active Substance: TACROLIMUS
  10. ASPIRIN [Concomitant]
     Active Substance: ASPIRIN
  11. diclofinac gel [Concomitant]
  12. uro-mag 84.6 [Concomitant]
  13. VITAMIN B12 [Concomitant]
     Active Substance: CYANOCOBALAMIN
  14. VITAMIN D3 [Concomitant]
     Active Substance: CHOLECALCIFEROL
  15. BIOTIN [Concomitant]
     Active Substance: BIOTIN
  16. OMEPRAZOLE [Concomitant]
     Active Substance: OMEPRAZOLE
  17. Thera M Plus vitamin [Concomitant]

REACTIONS (8)
  - Abdominal pain [None]
  - Vomiting [None]
  - Immunosuppressant drug level increased [None]
  - Therapy interrupted [None]
  - Acute kidney injury [None]
  - Hypertransaminasaemia [None]
  - Respiratory disorder [None]
  - Oxygen saturation decreased [None]

NARRATIVE: CASE EVENT DATE: 20220912
